FAERS Safety Report 7527528-X (Version None)
Quarter: 2011Q2

REPORT INFORMATION
  Report Type: 
  Country: None (occurrence: None)
  Receive Date: 20110607
  Receipt Date: 20110527
  Transmission Date: 20111010
  Serious: Yes (Other)
  Sender: FDA-Public Use
  Company Number: US-JNJFOC-20110512786

PATIENT
  Age: 21 Year
  Sex: Male

DRUGS (2)
  1. INVEGA SUSTENNA [Suspect]
     Indication: SCHIZOPHRENIA
     Route: 030
     Dates: start: 20091101, end: 20110501
  2. SAPHRIS [Concomitant]
     Indication: SCHIZOPHRENIA
     Dates: start: 20110501

REACTIONS (4)
  - WEIGHT INCREASED [None]
  - AGGRESSION [None]
  - MENTAL IMPAIRMENT [None]
  - DRUG INEFFECTIVE [None]
